FAERS Safety Report 7913940-3 (Version None)
Quarter: 2011Q4

REPORT INFORMATION
  Report Type: 
  Country: None (occurrence: None)
  Receive Date: 20111115
  Receipt Date: 20111110
  Transmission Date: 20120403
  Serious: Yes (Other)
  Sender: FDA-Public Use
  Company Number: CA-PFIZER INC-2011276992

PATIENT
  Sex: Female

DRUGS (1)
  1. IBUPROFEN [Suspect]

REACTIONS (2)
  - FOREIGN BODY [None]
  - CHOKING [None]
